FAERS Safety Report 13444306 (Version 1)
Quarter: 2017Q2

REPORT INFORMATION
  Report Type: Spontaneous
  Country: US (occurrence: US)
  Receive Date: 20170414
  Receipt Date: 20170414
  Transmission Date: 20170830
  Serious: No
  Sender: FDA-Public Use
  Company Number: US-NOVOPROD-525223

PATIENT
  Age: 67 Year
  Sex: Female

DRUGS (5)
  1. TRESIBA FLEXTOUCH U200 [Suspect]
     Active Substance: INSULIN DEGLUDEC
     Dosage: 62 U, QD
     Route: 058
     Dates: start: 201612
  2. NOVOLOG [Suspect]
     Active Substance: INSULIN ASPART
     Indication: TYPE 2 DIABETES MELLITUS
     Dosage: 15 U AT LUNCH 10 U AT DINNER
     Route: 058
     Dates: start: 20161210
  3. NOVOLOG [Suspect]
     Active Substance: INSULIN ASPART
     Dosage: 16 U AT LUNCH 10 U AT DINNER
     Route: 058
     Dates: start: 201612
  4. TRESIBA FLEXTOUCH U200 [Suspect]
     Active Substance: INSULIN DEGLUDEC
     Indication: TYPE 2 DIABETES MELLITUS
     Dosage: 60 U, QD
     Route: 058
     Dates: start: 20161210
  5. TRESIBA FLEXTOUCH U200 [Suspect]
     Active Substance: INSULIN DEGLUDEC
     Dosage: 64 U, QD
     Route: 058
     Dates: start: 201612

REACTIONS (1)
  - Blood glucose increased [Not Recovered/Not Resolved]

NARRATIVE: CASE EVENT DATE: 20161213
